FAERS Safety Report 14684608 (Version 2)
Quarter: 2018Q1

REPORT INFORMATION
  Report Type: Spontaneous
  Country: US (occurrence: US)
  Receive Date: 20180327
  Receipt Date: 20180329
  Transmission Date: 20180509
  Serious: Yes (Hospitalization, Other)
  Sender: FDA-Public Use
  Company Number: US-PFIZER INC-2018121558

PATIENT
  Age: 18 Week

DRUGS (1)
  1. INDOMETHACIN. [Suspect]
     Active Substance: INDOMETHACIN
     Indication: TOCOLYSIS
     Dosage: UNK
     Route: 064

REACTIONS (7)
  - Right ventricular hypertension [Recovered/Resolved]
  - Right ventricular dysfunction [Recovered/Resolved]
  - Foetal exposure during pregnancy [Recovered/Resolved]
  - Right ventricular hypertrophy [Recovered/Resolved]
  - Right atrial dilatation [Recovered/Resolved]
  - Tricuspid valve incompetence [Recovering/Resolving]
  - Ductus arteriosus premature closure [Not Recovered/Not Resolved]
